FAERS Safety Report 6305863-0 (Version None)
Quarter: 2009Q3

REPORT INFORMATION
  Report Type: 
  Country: None (occurrence: None)
  Receive Date: 20090812
  Receipt Date: 20090714
  Transmission Date: 20100115
  Serious: No
  Sender: FDA-Public Use
  Company Number: US-BAYER-200922231NA

PATIENT
  Age: 60 Year
  Sex: Female
  Weight: 75 kg

DRUGS (11)
  1. AVELOX [Suspect]
     Indication: SINUSITIS
     Dosage: SAMPLE AND PRESCRIPTION TABLETS
     Dates: start: 20090518
  2. ALTACE [Concomitant]
  3. NADOLOL [Concomitant]
  4. METFORMIN [Concomitant]
  5. AVANDIA [Concomitant]
  6. GLIMEPIRIDE [Concomitant]
  7. VYTORIN [Concomitant]
  8. NIASPAN [Concomitant]
  9. ASPIRIN [Concomitant]
  10. SERTRALINE [Concomitant]
  11. BUPROPION [Concomitant]

REACTIONS (3)
  - ARTHRALGIA [None]
  - MUSCULOSKELETAL PAIN [None]
  - PAIN IN EXTREMITY [None]
